FAERS Safety Report 9432288 (Version 2)
Quarter: 2013Q3

REPORT INFORMATION
  Report Type: Spontaneous
  Country: US (occurrence: None)
  Receive Date: 20130729
  Receipt Date: 20130826
  Transmission Date: 20140515
  Serious: Yes (Hospitalization)
  Sender: FDA-Public Use
  Company Number: UTC-035837

PATIENT
  Age: 58 Year
  Sex: Female
  Weight: 80.9 kg

DRUGS (2)
  1. REMODULIN (10 MILLIGRAM/MILLILITERS, INJECTION FOR INFUSION) (TREPROSTINIL SODIUM) [Suspect]
     Indication: PULMONARY ARTERIAL HYPERTENSION
     Dosage: 259.2 UG/KG (0.18 UG/KG, 1 IN 1 MIN), SUBCUTANEOUS
     Dates: start: 20060612
  2. COUMADIN (WARFARIN SODIUM) [Concomitant]

REACTIONS (2)
  - Infusion site abscess [None]
  - Pneumonia [None]
